FAERS Safety Report 15550223 (Version 1)
Quarter: 2018Q4

REPORT INFORMATION
  Report Type: Spontaneous
  Country: US (occurrence: US)
  Receive Date: 20181025
  Receipt Date: 20181025
  Transmission Date: 20190205
  Serious: No
  Sender: FDA-Public Use
  Company Number: US-GLAXOSMITHKLINE-US2018189701

PATIENT
  Age: 11 Year
  Sex: Male

DRUGS (1)
  1. PREVACID 24 HR [Suspect]
     Active Substance: LANSOPRAZOLE
     Indication: OESOPHAGEAL DISORDER
     Dosage: UNK
     Dates: start: 2015

REACTIONS (4)
  - Muscular weakness [Recovered/Resolved]
  - Overdose [Unknown]
  - Product use issue [Unknown]
  - Incorrect product administration duration [Unknown]
